FAERS Safety Report 15772474 (Version 1)
Quarter: 2018Q4

REPORT INFORMATION
  Report Type: Report from Study
  Country: ES (occurrence: ES)
  Receive Date: 20181228
  Receipt Date: 20181228
  Transmission Date: 20190205
  Serious: Yes (Hospitalization, Other)
  Sender: FDA-Public Use
  Company Number: ES-TEVA-2018-ES-992026

PATIENT
  Age: 95 Year
  Sex: Female

DRUGS (5)
  1. CITALOPRAM [Suspect]
     Active Substance: CITALOPRAM HYDROBROMIDE
     Dosage: 20 MG DIA
     Route: 048
     Dates: start: 20170920, end: 20180214
  2. OMEPRAZOL (2141A) [Concomitant]
     Active Substance: OMEPRAZOLE
     Dosage: 20 MG DIA
     Route: 048
     Dates: start: 20180113
  3. TRAMADOL / PARACETAMOL MYLAN 37,5 MG/325 MG COMPRIMIDOS RECUBIERTOS CO [Concomitant]
     Dosage: 1-1-1
     Route: 048
     Dates: start: 20180113
  4. FERPLEX 40 MG SOLUCION ORAL, 20 VIALES BEBIBLES DE 15 ML [Concomitant]
     Dosage: 1 VIAL DIA
     Route: 048
     Dates: start: 20180113
  5. SINTROM [Interacting]
     Active Substance: ACENOCOUMAROL
     Dosage: SP
     Route: 048
     Dates: start: 20161031, end: 20180214

REACTIONS (4)
  - Drug interaction [Unknown]
  - Lower gastrointestinal haemorrhage [Recovered/Resolved]
  - Anaemia [Recovered/Resolved]
  - Hypocoagulable state [Recovered/Resolved]

NARRATIVE: CASE EVENT DATE: 20180220
